FAERS Safety Report 8842644 (Version 1)
Quarter: 2012Q4

REPORT INFORMATION
  Report Type: 
  Country: US (occurrence: US)
  Receive Date: 20121016
  Receipt Date: 20121016
  Transmission Date: 20130627
  Serious: No
  Sender: FDA-Public Use
  Company Number: US-ASTRAZENECA-2012SE75916

PATIENT
  Age: 72 Year
  Sex: Female
  Weight: 52.2 kg

DRUGS (5)
  1. NEXIUM [Suspect]
     Indication: GASTROOESOPHAGEAL REFLUX DISEASE
     Route: 048
     Dates: start: 2002
  2. SIMVASTATIN [Concomitant]
     Indication: BLOOD CHOLESTEROL ABNORMAL
  3. LEVOTHYROXINE [Concomitant]
     Indication: THYROID DISORDER
  4. AMLODIPINE [Concomitant]
     Indication: BLOOD PRESSURE ABNORMAL
  5. BENAZEPRIL [Concomitant]
     Indication: BLOOD PRESSURE ABNORMAL

REACTIONS (6)
  - Oesophageal discomfort [Unknown]
  - Hypertension [Unknown]
  - Thyroid disorder [Unknown]
  - Blood cholesterol abnormal [Unknown]
  - Intentional drug misuse [Unknown]
  - Drug dose omission [Unknown]
